FAERS Safety Report 23713462 (Version 10)
Quarter: 2025Q2

REPORT INFORMATION
  Report Type: Spontaneous
  Country: PK (occurrence: PK)
  Receive Date: 20240405
  Receipt Date: 20250616
  Transmission Date: 20250717
  Serious: Yes (Hospitalization, Other)
  Sender: PFIZER
  Company Number: PK-PFIZER INC-PV202300204384

PATIENT
  Age: 36 Year
  Sex: Male
  Weight: 44 kg

DRUGS (16)
  1. IXIFI [Suspect]
     Active Substance: INFLIXIMAB-QBTX
     Indication: Ankylosing spondylitis
     Route: 042
     Dates: start: 202312
  2. IXIFI [Suspect]
     Active Substance: INFLIXIMAB-QBTX
     Indication: Inflammatory bowel disease
     Route: 042
     Dates: end: 20241228
  3. IXIFI [Suspect]
     Active Substance: INFLIXIMAB-QBTX
     Dosage: 200 MG, MONTHLY (2 MONTHLY)
     Route: 042
  4. ANUVA [Concomitant]
     Indication: Pain
     Dosage: 50 MG 1+1 IN MORNING AND EVENING CONTINUE
  5. CAC [Concomitant]
     Dosage: 10K 1 TAB DAILY
  6. FOLIC ACID [Concomitant]
     Active Substance: FOLIC ACID
     Dosage: 2 DF, 1X/DAY (5 MG 2 TABS TUESDAYS)
  7. ITOPRIDE [Concomitant]
     Active Substance: ITOPRIDE
     Dosage: 150 MG 1 TAB BEFORE BREAKFAST FOR 2 WEEKS.
  8. METHOTREXATE [Concomitant]
     Active Substance: METHOTREXATE
     Dosage: 2.5MG X 3 TABLETS EVERY SATURDAY/ 2.5MG 3TAB EVERY FRI
  9. NUBEROL [Concomitant]
     Indication: Pain
     Dosage: UNK, 2X/DAY (FORTE, 1+1 IN MORNING AND EVENING, FOR 2 WEEKS)
  10. RISEK [OMEPRAZOLE] [Concomitant]
     Dosage: 40MG 1 CAP IN MORNING BEFORE BREAKFAST
  11. TONOFLEX P [Concomitant]
     Indication: Pain
     Dosage: 1 TAB DAILY
  12. OSLIA [Concomitant]
     Dosage: 1 DF, MONTHLY (EVERY MONTH 1 TAB)
  13. ONSET [ONDANSETRON] [Concomitant]
     Dosage: 8 MG, 1X/DAY 1 TAB EVERY SAT BEFORE TX HALF AN HR
  14. CALDREE [Concomitant]
  15. TOFAJAK [Concomitant]
     Dosage: 5 MG, 1X/DAY EVERY SUN. OD FOR 2 WEEK THE B/D
  16. OMEZOL [OMEPRAZOLE] [Concomitant]
     Dosage: UNK, 1X/DAY (20 EMPTY STOMACH OD IN MORNING 1 MONTH)

REACTIONS (14)
  - Spinal pain [Recovered/Resolved]
  - Back pain [Recovered/Resolved]
  - Pulmonary tuberculosis [Unknown]
  - Hepatomegaly [Recovered/Resolved]
  - Red blood cell sedimentation rate increased [Unknown]
  - C-reactive protein increased [Unknown]
  - Diarrhoea [Unknown]
  - Dysuria [Unknown]
  - Pain [Unknown]
  - Blood uric acid increased [Unknown]
  - Blood creatinine decreased [Recovering/Resolving]
  - Drug ineffective [Unknown]
  - Off label use [Unknown]
  - Off label use [Unknown]

NARRATIVE: CASE EVENT DATE: 20241221
